FAERS Safety Report 8772792 (Version 2)
Quarter: 2012Q4

REPORT INFORMATION
  Report Type: 
  Country: AU (occurrence: AU)
  Receive Date: 20120907
  Receipt Date: 20121009
  Transmission Date: 20130627
  Serious: Yes (Other)
  Sender: FDA-Public Use
  Company Number: AU-PFIZER INC-2012217580

PATIENT
  Age: 54 Year
  Sex: Male
  Weight: 115 kg

DRUGS (5)
  1. PRISTIQ [Suspect]
     Indication: DEPRESSION
     Dosage: 50 mg, 1x/day
     Route: 048
     Dates: start: 20120831, end: 20120904
  2. PRISTIQ [Suspect]
     Indication: ANXIETY
  3. TRAMADOL [Concomitant]
     Indication: PAIN
     Dosage: 100 mg, 2x/day
     Route: 048
     Dates: start: 20120718
  4. TRAMADOL [Concomitant]
     Dosage: 50 mg, at night
     Route: 048
     Dates: start: 20120718
  5. CRESTOR [Concomitant]
     Indication: BLOOD CHOLESTEROL INCREASED
     Dosage: 10 mg, daily in the morning
     Route: 048
     Dates: start: 20100122

REACTIONS (8)
  - Serotonin syndrome [Unknown]
  - Hyperhidrosis [Recovered/Resolved]
  - Cold sweat [Recovered/Resolved]
  - Hyperreflexia [Recovered/Resolved]
  - Feeling jittery [Recovered/Resolved]
  - Tremor [Recovered/Resolved]
  - Headache [Recovered/Resolved]
  - Restlessness [Recovered/Resolved]
